FAERS Safety Report 12947889 (Version 2)
Quarter: 2017Q1

REPORT INFORMATION
  Report Type: Spontaneous
  Country: US (occurrence: US)
  Receive Date: 20161117
  Receipt Date: 20170228
  Transmission Date: 20170428
  Serious: Yes (Death, Hospitalization)
  Sender: FDA-Public Use
  Company Number: US-ROCHE-1855293

PATIENT
  Sex: Male

DRUGS (1)
  1. AVASTIN [Suspect]
     Active Substance: BEVACIZUMAB
     Indication: COLON CANCER
     Dosage: STRENGHT: 25 MG/ML
     Route: 042
     Dates: start: 20161025

REACTIONS (3)
  - Death [Fatal]
  - Metastatic neoplasm [Unknown]
  - Respiratory disorder [Unknown]
